FAERS Safety Report 11268175 (Version 1)
Quarter: 2015Q3

REPORT INFORMATION
  Report Type: Spontaneous
  Country: FR (occurrence: FR)
  Receive Date: 20150714
  Receipt Date: 20150714
  Transmission Date: 20151125
  Serious: No
  Sender: FDA-Public Use
  Company Number: US-ASTRAZENECA-2014SE40813

PATIENT
  Age: 70 Year
  Sex: Female

DRUGS (5)
  1. ONGLYZA [Suspect]
     Active Substance: SAXAGLIPTIN HYDROCHLORIDE
     Indication: TYPE 2 DIABETES MELLITUS
     Route: 048
     Dates: end: 2014
  2. SPIRONOLACTONE + ALTIZIDE BIOGARAN [Concomitant]
  3. METFORMINE [Concomitant]
     Active Substance: METFORMIN HYDROCHLORIDE
  4. COVERAM [Concomitant]
     Active Substance: AMLODIPINE\PERINDOPRIL
  5. METFORMINE [Concomitant]
     Active Substance: METFORMIN HYDROCHLORIDE
     Dosage: 850 MG AT MORNING, 1000 MG AT NIGHT

REACTIONS (3)
  - Cough [Recovered/Resolved]
  - Respiratory tract irritation [Recovered/Resolved]
  - Oropharyngeal discomfort [Recovered/Resolved]
